FAERS Safety Report 4665296-X (Version None)
Quarter: 2005Q2

REPORT INFORMATION
  Report Type: 
  Country: None (occurrence: None)
  Receive Date: 20050517
  Receipt Date: 20050126
  Transmission Date: 20051028
  Serious: No
  Sender: FDA-Public Use
  Company Number: S05-USA-00402-01

PATIENT
  Age: 74 Year
  Sex: Female

DRUGS (9)
  1. NAMENDA [Suspect]
     Indication: CONFUSIONAL STATE
     Dosage: 10 MG BID PO
     Route: 048
     Dates: start: 20041201
  2. NAMENDA [Suspect]
     Indication: CONFUSIONAL STATE
     Dosage: 5 MG QD PO
     Route: 048
     Dates: start: 20041201, end: 20041201
  3. NAMENDA [Suspect]
     Indication: CONFUSIONAL STATE
     Dosage: 10 MG QD PO
     Route: 048
     Dates: start: 20041201, end: 20041201
  4. NAMENDA [Suspect]
     Indication: CONFUSIONAL STATE
     Dosage: 15 MG QD PO
     Route: 048
     Dates: start: 20041201, end: 20041201
  5. GLUCOTROL [Concomitant]
  6. LISINOPRIL [Concomitant]
  7. COUMADIN [Concomitant]
  8. PROZAC [Concomitant]
  9. PREMARIN [Concomitant]

REACTIONS (1)
  - AGGRESSION [None]
